FAERS Safety Report 8584822-1 (Version None)
Quarter: 2012Q3

REPORT INFORMATION
  Report Type: 
  Country: None (occurrence: None)
  Receive Date: 20120810
  Receipt Date: 20120801
  Transmission Date: 20120928
  Serious: Yes (Hospitalization)
  Sender: FDA-Public Use
  Company Number: RO-JNJFOC-20120802566

PATIENT
  Sex: Female

DRUGS (3)
  1. SULFASALAZINE [Concomitant]
     Indication: COLITIS ULCERATIVE
     Route: 048
  2. REMICADE [Suspect]
     Indication: COLITIS ULCERATIVE
     Dosage: 4 BOTTLES/8 WEEKS
     Route: 042
     Dates: start: 20120301, end: 20120413
  3. FERROGRADUMET [Concomitant]
     Indication: ANAEMIA
     Route: 048

REACTIONS (1)
  - B-CELL LYMPHOMA [None]
